FAERS Safety Report 8883339 (Version 2)
Quarter: 2012Q4

REPORT INFORMATION
  Report Type: 
  Country: US (occurrence: US)
  Receive Date: 20121102
  Receipt Date: 20121119
  Transmission Date: 20130627
  Serious: Yes (Other)
  Sender: FDA-Public Use
  Company Number: US-009507513-1211USA000203

PATIENT
  Age: 82 Year
  Sex: Female

DRUGS (1)
  1. EMEND FOR INJECTION [Suspect]
     Indication: PROPHYLAXIS OF NAUSEA AND VOMITING
     Dosage: UNK
     Route: 042
     Dates: start: 20121030

REACTIONS (3)
  - Convulsion [Recovered/Resolved]
  - Hypersensitivity [Recovered/Resolved]
  - Underdose [Unknown]
